FAERS Safety Report 11488978 (Version 1)
Quarter: 2015Q3

REPORT INFORMATION
  Report Type: Spontaneous
  Country: US (occurrence: US)
  Receive Date: 20150910
  Receipt Date: 20150910
  Transmission Date: 20151125
  Serious: Yes (Other)
  Sender: FDA-Public Use
  Company Number: US-ROCHE-1427470

PATIENT
  Age: 59 Year
  Sex: Female

DRUGS (11)
  1. RIBAVIRIN. [Suspect]
     Active Substance: RIBAVIRIN
     Dosage: 4 PILLS A DAY
     Route: 065
  2. IBUPROFEN. [Concomitant]
     Active Substance: IBUPROFEN
  3. PEGASYS [Suspect]
     Active Substance: PEGINTERFERON ALFA-2A
     Dosage: FOR TWO WEEKS,L DOSE WAS REDUCED
     Route: 058
  4. PEGASYS [Suspect]
     Active Substance: PEGINTERFERON ALFA-2A
     Route: 058
  5. PEGASYS [Suspect]
     Active Substance: PEGINTERFERON ALFA-2A
     Dosage: DOSE AGAIN INCREASED
     Route: 058
  6. PEGASYS [Suspect]
     Active Substance: PEGINTERFERON ALFA-2A
     Route: 058
  7. SOVALDI [Suspect]
     Active Substance: SOFOSBUVIR
     Indication: CHRONIC HEPATITIS C
     Route: 065
     Dates: start: 20140627
  8. PEGASYS [Suspect]
     Active Substance: PEGINTERFERON ALFA-2A
     Dosage: DOSE REDUCED
     Route: 058
  9. TRAZODONE [Concomitant]
     Active Substance: TRAZODONE HYDROCHLORIDE
  10. RIBAVIRIN. [Suspect]
     Active Substance: RIBAVIRIN
     Indication: CHRONIC HEPATITIS C
     Dosage: DIVIDED DOSES, 400/600
     Route: 065
     Dates: start: 20140627
  11. PEGASYS [Suspect]
     Active Substance: PEGINTERFERON ALFA-2A
     Indication: CHRONIC HEPATITIS C
     Route: 058
     Dates: start: 20140627

REACTIONS (21)
  - Abdominal discomfort [Not Recovered/Not Resolved]
  - Injection site erythema [Unknown]
  - Neuropathy peripheral [Unknown]
  - Weight decreased [Unknown]
  - Oral pain [Unknown]
  - Haemoglobin decreased [Unknown]
  - Productive cough [Unknown]
  - Back pain [Recovered/Resolved]
  - White blood cell count decreased [Unknown]
  - Memory impairment [Unknown]
  - Dry mouth [Not Recovered/Not Resolved]
  - Fat tissue decreased [Unknown]
  - Subcutaneous abscess [Unknown]
  - Erythema [Unknown]
  - Neutrophil count decreased [Unknown]
  - Loss of consciousness [Unknown]
  - Initial insomnia [Unknown]
  - Bone pain [Unknown]
  - Vision blurred [Unknown]
  - Peripheral swelling [Unknown]
  - Pneumonia [Unknown]

NARRATIVE: CASE EVENT DATE: 20140628
